FAERS Safety Report 6522155-5 (Version None)
Quarter: 2009Q4

REPORT INFORMATION
  Report Type: 
  Country: None (occurrence: None)
  Receive Date: 20091230
  Receipt Date: 20091217
  Transmission Date: 20100525
  Serious: Yes (Hospitalization)
  Sender: FDA-Public Use
  Company Number: FR-CELGENEUS-056-C5013-09111486

PATIENT
  Sex: Male
  Weight: 72 kg

DRUGS (31)
  1. CC-5013 [Suspect]
     Indication: MULTIPLE MYELOMA
     Route: 048
     Dates: start: 20091207
  2. CC-5013 [Suspect]
     Route: 048
     Dates: start: 20091028, end: 20091124
  3. CC-5013 [Suspect]
     Route: 048
     Dates: start: 20090902
  4. DEXAMETHASONE [Suspect]
     Indication: MULTIPLE MYELOMA
     Route: 065
     Dates: start: 20091207
  5. DEXAMETHASONE [Suspect]
     Route: 065
     Dates: start: 20091028, end: 20091124
  6. DEXAMETHASONE [Suspect]
     Route: 065
     Dates: start: 20090902
  7. KEPPRA [Concomitant]
     Indication: EPILEPSY
     Route: 048
     Dates: start: 20070101
  8. TEMERIT [Concomitant]
     Route: 048
     Dates: start: 19940101, end: 20091101
  9. HEMIGOXINE [Concomitant]
     Route: 048
     Dates: start: 20010101
  10. HEMIGOXINE [Concomitant]
  11. NEO RECORMON [Concomitant]
     Route: 058
     Dates: start: 20090901
  12. PROPHYLAXIS FOR THROMBOSIS/EMBOLISM [Concomitant]
     Route: 065
     Dates: start: 20010101
  13. PROPHYLAXIS FOR THROMBOSIS/EMBOLISM [Concomitant]
  14. LASILIX [Concomitant]
     Indication: DRUG USE FOR UNKNOWN INDICATION
     Dosage: 20
     Route: 065
  15. LASILIX [Concomitant]
  16. PRAVASTATIN [Concomitant]
     Indication: DRUG USE FOR UNKNOWN INDICATION
     Dosage: 20
     Route: 065
  17. PRAVASTATIN [Concomitant]
  18. DURAGESIC-100 [Concomitant]
     Indication: DRUG USE FOR UNKNOWN INDICATION
     Route: 065
  19. DURAGESIC-100 [Concomitant]
  20. ACTISKENAN [Concomitant]
     Indication: DRUG USE FOR UNKNOWN INDICATION
     Dosage: 10
     Route: 065
  21. ACTISKENAN [Concomitant]
  22. ALLOPURINOL [Concomitant]
     Indication: DRUG USE FOR UNKNOWN INDICATION
     Dosage: 100
     Route: 065
  23. ALLOPURINOL [Concomitant]
  24. PREVISCAN [Concomitant]
     Indication: DRUG USE FOR UNKNOWN INDICATION
     Route: 065
  25. PREVISCAN [Concomitant]
  26. BIPRETERAX [Concomitant]
     Indication: DRUG USE FOR UNKNOWN INDICATION
     Route: 065
  27. BIPRETERAX [Concomitant]
  28. SOLU-MEDROL [Concomitant]
     Route: 065
  29. SOLU-MEDROL [Concomitant]
  30. TARDYFERON [Concomitant]
     Indication: DRUG USE FOR UNKNOWN INDICATION
     Route: 065
  31. TARDYFERON [Concomitant]

REACTIONS (3)
  - PNEUMONIA ESCHERICHIA [None]
  - PROSTATITIS [None]
  - SEPSIS [None]
